FAERS Safety Report 5867824-5 (Version None)
Quarter: 2008Q3

REPORT INFORMATION
  Report Type: 
  Country: None (occurrence: None)
  Receive Date: 20080902
  Receipt Date: 20080825
  Transmission Date: 20090109
  Serious: Yes (Other)
  Sender: FDA-Public Use
  Company Number: US-GENENTECH-264708

PATIENT
  Sex: Female
  Weight: 70.748 kg

DRUGS (5)
  1. AVASTIN [Suspect]
     Indication: BREAST CANCER METASTATIC
     Dosage: 709 MG, Q2W
     Route: 042
     Dates: start: 20000630, end: 20080716
  2. GEMZAR [Concomitant]
     Indication: DRUG USE FOR UNKNOWN INDICATION
     Dosage: 878 MG, UNK
     Dates: start: 20080707
  3. CISPLATIN [Concomitant]
     Indication: DRUG USE FOR UNKNOWN INDICATION
     Dosage: 37 MG, UNK
     Dates: start: 20080707
  4. LORTAB [Concomitant]
     Indication: DRUG USE FOR UNKNOWN INDICATION
     Dosage: 1 UNK, PRN
     Route: 048
  5. ZOMETA [Concomitant]
     Indication: DRUG USE FOR UNKNOWN INDICATION
     Dosage: 4 MG, UNK

REACTIONS (4)
  - CONFUSIONAL STATE [None]
  - HEADACHE [None]
  - HYPERTENSION [None]
  - VISUAL IMPAIRMENT [None]
